FAERS Safety Report 21095125 (Version 1)
Quarter: 2022Q3

REPORT INFORMATION
  Report Type: Spontaneous
  Country: US (occurrence: None)
  Receive Date: 20220716
  Receipt Date: 20220716
  Transmission Date: 20221027
  Serious: Yes (Disabling, Other)
  Sender: FDA-Public Use
  Company Number: None

PATIENT
  Age: 34 Year
  Sex: Female
  Weight: 76.5 kg

DRUGS (1)
  1. BUPRENORPHINE\NALOXONE [Suspect]
     Active Substance: BUPRENORPHINE\NALOXONE
     Indication: Drug dependence
     Dates: start: 20070611

REACTIONS (5)
  - Tooth infection [None]
  - Osteomyelitis [None]
  - Tooth loss [None]
  - Dental caries [None]
  - Product communication issue [None]

NARRATIVE: CASE EVENT DATE: 20180611
